FAERS Safety Report 4278570-6 (Version None)
Quarter: 2004Q1

REPORT INFORMATION
  Report Type: 
  Country: None (occurrence: None)
  Receive Date: 20040122
  Receipt Date: 20040106
  Transmission Date: 20041129
  Serious: Yes (Hospitalization)
  Sender: FDA-Public Use
  Company Number: F01200400018

PATIENT
  Age: 79 Year
  Sex: Male

DRUGS (18)
  1. FONDAPARINUX - SOLUTION - 2.5 MG [Suspect]
     Indication: THROMBOSIS PROPHYLAXIS
     Dosage: 2.5 MG, OD, SUBCUTANEOUS
     Route: 058
     Dates: start: 20031118, end: 20031124
  2. ELTROXIN (LEVOTHYROXINE SODIUM) [Concomitant]
  3. VIOXX [Concomitant]
  4. ASPIRIN [Concomitant]
  5. ATIVAN [Concomitant]
  6. OXYCONTIN [Concomitant]
  7. GENTAMICIN SULFATE [Concomitant]
  8. VANCOMYCIN [Concomitant]
  9. MORPHINE [Concomitant]
  10. HALDOL [Concomitant]
  11. THIAMINE [Concomitant]
  12. FOLATE (FOLIC ACID) [Concomitant]
  13. MULTIVITAMIN (VITAMIN NOS) [Concomitant]
  14. FERROUS FUMARATE [Concomitant]
  15. COLACE (DOCUSATE SODIUM) [Concomitant]
  16. GRAVOL TAB [Concomitant]
  17. DULCOLAX [Concomitant]
  18. PERCOCET [Concomitant]

REACTIONS (4)
  - DIARRHOEA [None]
  - DUODENAL ULCER HAEMORRHAGE [None]
  - HAEMATOCRIT ABNORMAL [None]
  - HAEMOGLOBIN ABNORMAL [None]
